FAERS Safety Report 19457662 (Version 4)
Quarter: 2022Q1

REPORT INFORMATION
  Report Type: Report from Study
  Country: CA (occurrence: CA)
  Receive Date: 20210624
  Receipt Date: 20220226
  Transmission Date: 20220424
  Serious: Yes (Hospitalization)
  Sender: FDA-Public Use
  Company Number: NVSC2021CA105001

PATIENT
  Age: 47 Year
  Sex: Female

DRUGS (6)
  1. COSENTYX [Suspect]
     Active Substance: SECUKINUMAB
     Indication: Psoriatic arthropathy
     Dosage: 150 MG, QMO
     Route: 058
     Dates: start: 20210405
  2. COSENTYX [Suspect]
     Active Substance: SECUKINUMAB
     Dosage: 150 MG, QMO
     Route: 058
     Dates: start: 202105
  3. COSENTYX [Suspect]
     Active Substance: SECUKINUMAB
     Dosage: UNK
     Route: 065
     Dates: start: 20210715
  4. HUMIRA [Concomitant]
     Active Substance: ADALIMUMAB
     Indication: Product used for unknown indication
     Dosage: UNK
     Route: 065
  5. METHOTREXATE [Concomitant]
     Active Substance: METHOTREXATE
     Indication: Product used for unknown indication
     Dosage: UNK
     Route: 048
  6. NAPROXEN [Concomitant]
     Active Substance: NAPROXEN
     Indication: Product used for unknown indication
     Dosage: UNK
     Route: 065

REACTIONS (13)
  - Skin papilloma [Unknown]
  - Impaired healing [Unknown]
  - Pain [Unknown]
  - Skin lesion [Recovering/Resolving]
  - Skin weeping [Unknown]
  - Arthralgia [Unknown]
  - Gait disturbance [Unknown]
  - Joint swelling [Unknown]
  - Peripheral swelling [Unknown]
  - Mass [Unknown]
  - Stress [Unknown]
  - Adverse drug reaction [Unknown]
  - Influenza [Unknown]

NARRATIVE: CASE EVENT DATE: 20210401
